FAERS Safety Report 18979793 (Version 1)
Quarter: 2021Q1

REPORT INFORMATION
  Report Type: Spontaneous
  Country: US (occurrence: US)
  Receive Date: 20210305
  Receipt Date: 20210305
  Transmission Date: 20210420
  Serious: Yes (Other)
  Sender: FDA-Public Use
  Company Number: None

PATIENT
  Age: 71 Year
  Sex: Male
  Weight: 65.5 kg

DRUGS (6)
  1. LEVOTHROID [Concomitant]
     Active Substance: LEVOTHYROXINE SODIUM
  2. AMLODIPINE [Concomitant]
     Active Substance: AMLODIPINE BESYLATE
  3. RENKELA [Concomitant]
  4. TRIFERIC [Suspect]
     Active Substance: FERRIC PYROPHOSPHATE CITRATE
     Indication: MINERAL SUPPLEMENTATION
     Dosage: ?          QUANTITY:1PK?} 25 GALLS H20;OTHER FREQUENCY:EVERY DIALYSIS TC;OTHER ROUTE:VIA CENTRAL BICARBONATE LOOP?
     Dates: start: 20210209, end: 20210213
  5. ATORVASTATION [Concomitant]
  6. GABAPENTIN. [Concomitant]
     Active Substance: GABAPENTIN

REACTIONS (2)
  - Thrombosis in device [None]
  - Complication associated with device [None]

NARRATIVE: CASE EVENT DATE: 20210211
